FAERS Safety Report 9412285 (Version 1)
Quarter: 2013Q3

REPORT INFORMATION
  Report Type: Spontaneous
  Country: GB (occurrence: GB)
  Receive Date: 20130722
  Receipt Date: 20130722
  Transmission Date: 20140515
  Serious: Yes (Hospitalization)
  Sender: FDA-Public Use
  Company Number: GB-PFIZER INC-2013208450

PATIENT
  Age: 55 Year
  Sex: Female
  Weight: 70.8 kg

DRUGS (7)
  1. METRONIDAZOLE [Suspect]
     Indication: TOOTH INFECTION
     Dosage: 400 MG, 3X/DAY
     Route: 048
     Dates: start: 20130627, end: 20130630
  2. PREMARIN [Concomitant]
     Dosage: UNK
  3. FEXOFENADINE [Concomitant]
     Dosage: UNK
  4. OMEPRAZOLE [Concomitant]
  5. LEVOCETIRIZINE [Concomitant]
     Dosage: UNK
  6. PREDNISOLONE [Concomitant]
     Dosage: UNK
  7. ORLISTAT [Concomitant]

REACTIONS (3)
  - Chest pain [Recovered/Resolved]
  - Muscular weakness [Recovered/Resolved]
  - Paraesthesia [Recovered/Resolved]
